FAERS Safety Report 5514442-4 (Version None)
Quarter: 2007Q4

REPORT INFORMATION
  Report Type: 
  Country: None (occurrence: None)
  Receive Date: 20071113
  Receipt Date: 20070615
  Transmission Date: 20080405
  Serious: No
  Sender: FDA-Public Use
  Company Number: A0652231A

PATIENT
  Age: 60 Year
  Sex: Male
  Weight: 66.8 kg

DRUGS (6)
  1. COREG [Suspect]
     Indication: HYPERTENSION
     Dosage: 12.5MG TWICE PER DAY
     Route: 048
     Dates: start: 20030312, end: 20070301
  2. COREG CR [Suspect]
     Indication: HYPERTENSION
     Dosage: 40MG PER DAY
     Route: 048
     Dates: start: 20070520, end: 20070521
  3. PRINIVIL [Concomitant]
     Indication: HYPERTENSION
     Dosage: 10MG PER DAY
     Route: 048
     Dates: start: 19990812
  4. ASPIRIN [Concomitant]
     Dosage: 81MG PER DAY
     Route: 048
     Dates: start: 20021118
  5. NEXIUM [Concomitant]
     Indication: GASTROINTESTINAL DISORDER
     Dosage: 40MG PER DAY
     Route: 048
     Dates: start: 20030312
  6. PRAVACHOL [Concomitant]
     Dosage: 40MG PER DAY
     Route: 048
     Dates: start: 19980828

REACTIONS (4)
  - BLISTER [None]
  - FEELING HOT [None]
  - RASH MACULAR [None]
  - RASH PRURITIC [None]
